FAERS Safety Report 20795821 (Version 1)
Quarter: 2022Q2

REPORT INFORMATION
  Report Type: Spontaneous
  Country: RU (occurrence: RU)
  Receive Date: 20220506
  Receipt Date: 20220506
  Transmission Date: 20220721
  Serious: Yes (Other)
  Sender: FDA-Public Use
  Company Number: RU-NOVARTISPH-NVSC2022RU101954

PATIENT
  Age: 44 Year
  Sex: Male
  Weight: 85 kg

DRUGS (2)
  1. TAFINLAR [Suspect]
     Active Substance: DABRAFENIB MESYLATE
     Indication: Malignant melanoma
     Dosage: 75 MG, BID
     Route: 048
     Dates: start: 20220425, end: 20220425
  2. MEKINIST [Suspect]
     Active Substance: TRAMETINIB DIMETHYL SULFOXIDE
     Indication: Malignant melanoma
     Dosage: 2 MG, QD BEFORE PROGRESSION
     Route: 065
     Dates: start: 20220425, end: 20220425

REACTIONS (2)
  - Diarrhoea [Recovering/Resolving]
  - Hyperthermia [Recovering/Resolving]

NARRATIVE: CASE EVENT DATE: 20220425
